FAERS Safety Report 22839686 (Version 3)
Quarter: 2023Q4

REPORT INFORMATION
  Report Type: Report from Study
  Country: BR (occurrence: BR)
  Receive Date: 20230818
  Receipt Date: 20231221
  Transmission Date: 20240110
  Serious: Yes (Death, Life-Threatening, Hospitalization)
  Sender: FDA-Public Use
  Company Number: BR-002147023-NVSC2023BR175275

PATIENT
  Age: 61 Year
  Sex: Male

DRUGS (2)
  1. TAFINLAR [Suspect]
     Active Substance: DABRAFENIB MESYLATE
     Indication: Metastatic malignant melanoma
     Dosage: UNK
     Route: 065
     Dates: start: 20230726
  2. MEKINIST [Suspect]
     Active Substance: TRAMETINIB DIMETHYL SULFOXIDE
     Indication: Metastatic malignant melanoma
     Dosage: UNK
     Route: 065
     Dates: start: 20230726

REACTIONS (11)
  - Primary pulmonary melanoma [Fatal]
  - Hepatic cancer [Fatal]
  - Acquired immunodeficiency syndrome [Fatal]
  - Malignant peritoneal neoplasm [Fatal]
  - Feeling abnormal [Unknown]
  - Haemorrhage [Unknown]
  - Pyrexia [Unknown]
  - Infection [Unknown]
  - Pulmonary arterial pressure abnormal [Recovering/Resolving]
  - Asthenia [Recovering/Resolving]
  - Malaise [Unknown]

NARRATIVE: CASE EVENT DATE: 20231007
